FAERS Safety Report 4533665-4 (Version None)
Quarter: 2004Q4

REPORT INFORMATION
  Report Type: 
  Country: None (occurrence: None)
  Receive Date: 20041210
  Receipt Date: 20041005
  Transmission Date: 20050328
  Serious: No
  Sender: FDA-Public Use
  Company Number: 2004-00605

PATIENT
  Age: 80 Year
  Sex: Female
  Weight: 53.1 kg

DRUGS (6)
  1. VELCADE [Suspect]
     Indication: MULTIPLE MYELOMA
     Dosage: INTRAVENOUS
     Route: 042
     Dates: start: 20040921, end: 20041001
  2. RESTORIL [Concomitant]
  3. XANAX [Concomitant]
  4. NORVASC [Concomitant]
  5. ZOCOR [Concomitant]
  6. ZOMETA [Concomitant]

REACTIONS (2)
  - CONSTIPATION [None]
  - NEUROPATHY [None]
